FAERS Safety Report 20138491 (Version 12)
Quarter: 2024Q3

REPORT INFORMATION
  Report Type: Report from Study
  Country: US (occurrence: US)
  Receive Date: 20211202
  Receipt Date: 20240719
  Transmission Date: 20241017
  Serious: Yes (Hospitalization, Other)
  Sender: AMGEN
  Company Number: US-HORIZON THERAPEUTICS-HZN-2021-007350

PATIENT
  Age: 76 Year
  Sex: Female

DRUGS (5)
  1. RAYOS [Suspect]
     Active Substance: PREDNISONE
     Indication: Rheumatoid arthritis
     Dosage: 10 MILLIGRAM, QD 5 MG (2 TABLETS), AT 10PM
     Route: 048
     Dates: start: 20201021, end: 20240414
  2. RAYOS [Suspect]
     Active Substance: PREDNISONE
     Indication: Multifocal fibrosclerosis
     Dosage: 5 MILLIGRAM
     Route: 048
  3. RAYOS [Suspect]
     Active Substance: PREDNISONE
     Dosage: 5 MILLIGRAM, QD (3 TABLETS AT BED TIME FOR 1 WEEK)
     Route: 048
  4. RAYOS [Suspect]
     Active Substance: PREDNISONE
     Dosage: 5 MILLIGRAM, QD (2 TABLETS AT BEDTIME FOR 1 WEEK)
     Route: 048
  5. RAYOS [Suspect]
     Active Substance: PREDNISONE
     Dosage: 5 MILLIGRAM, QD (THEN DECREASE TO TO 1 TABLET BEFORE BED UNTIL DIRECTED OTHERWISE)
     Route: 048

REACTIONS (11)
  - Diabetes mellitus [Unknown]
  - Catheterisation cardiac [Unknown]
  - Illness [Unknown]
  - Foreign body in gastrointestinal tract [Unknown]
  - Musculoskeletal stiffness [Unknown]
  - Product dose omission issue [Unknown]
  - Intentional underdose [Unknown]
  - Rheumatoid arthritis [Unknown]
  - Product use issue [Unknown]
  - Malaise [Unknown]
  - Oedema peripheral [Unknown]

NARRATIVE: CASE EVENT DATE: 20211114
